FAERS Safety Report 7426888-8 (Version None)
Quarter: 2011Q2

REPORT INFORMATION
  Report Type: 
  Country: None (occurrence: None)
  Receive Date: 20110415
  Receipt Date: 20110415
  Transmission Date: 20111010
  Serious: No
  Sender: FDA-Public Use
  Company Number: None

PATIENT
  Age: 63 Year
  Sex: Male
  Weight: 85 kg

DRUGS (1)
  1. TAMSULOSIN HCL [Suspect]
     Dosage: 0.4MG MG AT BEDTIME PO
     Route: 048
     Dates: start: 20101110, end: 20110310

REACTIONS (3)
  - NIGHTMARE [None]
  - OEDEMA PERIPHERAL [None]
  - PRODUCT SUBSTITUTION ISSUE [None]
